FAERS Safety Report 7297427-X (Version None)
Quarter: 2011Q1

REPORT INFORMATION
  Report Type: 
  Country: None (occurrence: None)
  Receive Date: 20110216
  Receipt Date: 20110208
  Transmission Date: 20110831
  Serious: Yes (Hospitalization, Other)
  Sender: FDA-Public Use
  Company Number: US-BAXTER-2010BH028237

PATIENT
  Age: 77 Year
  Sex: Male
  Weight: 77 kg

DRUGS (5)
  1. CYCLOPHOSPHAMIDE [Suspect]
     Indication: MULTIPLE MYELOMA
     Route: 042
     Dates: start: 20100921, end: 20100923
  2. VELCADE [Suspect]
     Indication: MULTIPLE MYELOMA
     Route: 042
     Dates: start: 20100901, end: 20100923
  3. DEXAMETHASONE [Suspect]
     Indication: MULTIPLE MYELOMA
     Route: 042
     Dates: start: 20100901, end: 20100923
  4. LISINOPRIL [Suspect]
     Indication: HYPERTENSION
     Route: 065
  5. CARDIZEM [Suspect]
     Indication: HYPERTENSION
     Route: 065

REACTIONS (2)
  - ORTHOSTATIC HYPOTENSION [None]
  - DEHYDRATION [None]
